FAERS Safety Report 16120654 (Version 1)
Quarter: 2019Q1

REPORT INFORMATION
  Report Type: Spontaneous
  Country: CA (occurrence: CA)
  Receive Date: 20190327
  Receipt Date: 20190327
  Transmission Date: 20190418
  Serious: Yes (Life-Threatening)
  Sender: FDA-Public Use
  Company Number: CA-B.I. PHARMACEUTICALS,INC./RIDGEFIELD-2019-BI-013589

PATIENT
  Age: 80 Year
  Sex: Female
  Weight: 215 kg

DRUGS (2)
  1. VITAMIN D [Concomitant]
     Active Substance: CHOLECALCIFEROL
     Indication: PRODUCT USED FOR UNKNOWN INDICATION
     Route: 065
  2. JENTADUETO [Suspect]
     Active Substance: LINAGLIPTIN\METFORMIN HYDROCHLORIDE
     Indication: DIABETES MELLITUS
     Route: 048

REACTIONS (8)
  - Crying [Unknown]
  - Memory impairment [Unknown]
  - Suicidal ideation [Unknown]
  - Fatigue [Unknown]
  - Food craving [Unknown]
  - Emotional disorder [Unknown]
  - Depression [Unknown]
  - Abdominal distension [Unknown]
